FAERS Safety Report 9625667 (Version 2)
Quarter: 2013Q4

REPORT INFORMATION
  Report Type: Report from Study
  Country: JP (occurrence: JP)
  Receive Date: 20131016
  Receipt Date: 20131016
  Transmission Date: 20140711
  Serious: Yes (Death, Hospitalization)
  Sender: FDA-Public Use
  Company Number: JP-ELI_LILLY_AND_COMPANY-JP201309007892

PATIENT
  Age: 70 Year
  Sex: Male
  Weight: 45.2 kg

DRUGS (9)
  1. PEMETREXED [Suspect]
     Indication: NON-SMALL CELL LUNG CANCER STAGE IV
     Dosage: 500 MG/M2, UNK
     Route: 042
     Dates: start: 20130703, end: 20130919
  2. GEFITINIB [Suspect]
     Indication: NON-SMALL CELL LUNG CANCER STAGE IV
     Dosage: 250 MG, UNK
     Dates: start: 20130703, end: 20130919
  3. DIOVAN [Concomitant]
     Indication: HYPERTENSION
     Dosage: 80 MG, QD
     Route: 048
  4. CALONAL [Concomitant]
     Indication: CANCER PAIN
     Dosage: 400 MG, TID
     Route: 048
     Dates: start: 20130627
  5. PANVITAN [Concomitant]
     Indication: PROPHYLAXIS
     Dosage: 1 G, QD
     Route: 048
     Dates: start: 20130626
  6. RINDERON [Concomitant]
     Indication: RASH
     Dosage: UNK
     Route: 062
     Dates: start: 20130717
  7. MYSER [Concomitant]
     Indication: RASH
     Dosage: UNK
     Route: 062
     Dates: start: 20130717
  8. LOCOID [Concomitant]
     Indication: RASH
     Dosage: UNK
     Route: 062
     Dates: start: 20130717
  9. REBAMIPIDE [Concomitant]
     Indication: PROPHYLAXIS
     Dosage: 100 MG, TID
     Route: 048
     Dates: start: 20130814

REACTIONS (1)
  - Pneumonitis [Fatal]
